FAERS Safety Report 12923623 (Version 4)
Quarter: 2017Q1

REPORT INFORMATION
  Report Type: Spontaneous
  Country: PE (occurrence: PE)
  Receive Date: 20161109
  Receipt Date: 20170110
  Transmission Date: 20170428
  Serious: Yes (Other)
  Sender: FDA-Public Use
  Company Number: PE-PFIZER INC-2016514015

PATIENT
  Age: 76 Year
  Sex: Female

DRUGS (2)
  1. LYRICA [Suspect]
     Active Substance: PREGABALIN
     Indication: DIABETIC NEUROPATHY
     Dosage: 75 MG, 2X/DAY
     Dates: start: 201608, end: 201610
  2. LYRICA [Suspect]
     Active Substance: PREGABALIN
     Dosage: 150 MG, 1X/DAY

REACTIONS (11)
  - Pain in extremity [Unknown]
  - Drug ineffective [Unknown]
  - Bladder prolapse [Not Recovered/Not Resolved]
  - Diabetes mellitus [Unknown]
  - Fall [Unknown]
  - Urinary incontinence [Unknown]
  - Vision blurred [Unknown]
  - Intentional product use issue [Unknown]
  - Disease recurrence [Not Recovered/Not Resolved]
  - Loss of consciousness [Unknown]
  - Memory impairment [Unknown]

NARRATIVE: CASE EVENT DATE: 201602
